FAERS Safety Report 20983774 (Version 1)
Quarter: 2022Q2

REPORT INFORMATION
  Report Type: Spontaneous
  Country: US (occurrence: US)
  Receive Date: 20220621
  Receipt Date: 20220621
  Transmission Date: 20220720
  Serious: Yes (Other)
  Sender: FDA-Public Use
  Company Number: US-JNJFOC-20220627069

PATIENT
  Age: 68 Year
  Sex: Female
  Weight: 113.50 kg

DRUGS (2)
  1. CONCERTA [Suspect]
     Active Substance: METHYLPHENIDATE HYDROCHLORIDE
     Indication: Cognitive disorder
     Route: 048
  2. CONCERTA [Suspect]
     Active Substance: METHYLPHENIDATE HYDROCHLORIDE
     Indication: Hydrocephalus

REACTIONS (3)
  - Apallic syndrome [Unknown]
  - Product dose omission issue [Unknown]
  - Product use in unapproved indication [Unknown]
